FAERS Safety Report 15964805 (Version 2)
Quarter: 2019Q1

REPORT INFORMATION
  Report Type: Spontaneous
  Country: US (occurrence: US)
  Receive Date: 20190215
  Receipt Date: 20190327
  Transmission Date: 20190418
  Serious: No
  Sender: FDA-Public Use
  Company Number: US-009507513-1901USA007335

PATIENT
  Sex: Female
  Weight: 57.51 kg

DRUGS (2)
  1. NEXPLANON [Suspect]
     Active Substance: ETONOGESTREL
     Indication: CONTRACEPTION
     Dosage: A UNIT, THE ROD
     Route: 059
     Dates: start: 20190116, end: 20190116
  2. NEXPLANON [Suspect]
     Active Substance: ETONOGESTREL
     Dosage: ANOTHER UNIT
     Route: 059
     Dates: start: 20190116

REACTIONS (5)
  - Product quality issue [Recovered/Resolved]
  - Device deployment issue [Recovered/Resolved]
  - Device difficult to use [Recovered/Resolved]
  - No adverse event [Unknown]
  - Wrong technique in product usage process [Unknown]

NARRATIVE: CASE EVENT DATE: 20190116
